FAERS Safety Report 19064710 (Version 1)
Quarter: 2021Q1

REPORT INFORMATION
  Report Type: Spontaneous
  Country: CN (occurrence: CN)
  Receive Date: 20210326
  Receipt Date: 20210326
  Transmission Date: 20210420
  Serious: Yes (Hospitalization)
  Sender: FDA-Public Use
  Company Number: CN-SA-2021SA091436

PATIENT

DRUGS (1)
  1. LYXUMIA [Suspect]
     Active Substance: LIXISENATIDE
     Route: 065

REACTIONS (1)
  - Gastrointestinal disorder [Unknown]
